FAERS Safety Report 8581301-2 (Version None)
Quarter: 2012Q3

REPORT INFORMATION
  Report Type: 
  Country: None (occurrence: None)
  Receive Date: 20120809
  Receipt Date: 20120731
  Transmission Date: 20120928
  Serious: Yes (Other)
  Sender: FDA-Public Use
  Company Number: JP-NOVOPROD-305086

PATIENT
  Age: 4 Year
  Sex: Female
  Weight: 13 kg

DRUGS (4)
  1. NORDITROPIN NORDIFLEX [Suspect]
     Indication: CHONDRODYSTROPHY
     Dosage: 2.1MG/WEEK(0.35MGX6)
     Route: 058
     Dates: start: 20081201, end: 20090108
  2. NORDITROPIN NORDIFLEX [Suspect]
     Dosage: 3.0MG/WEEK(0.5MG X6)
     Route: 058
     Dates: start: 20090108, end: 20090212
  3. NORDITROPIN NORDIFLEX [Suspect]
     Dosage: 4.2MG/WEEK(0.7MG X6)
     Route: 058
     Dates: start: 20090212
  4. NORDITROPIN NORDIFLEX [Suspect]
     Dosage: 6.3 MG, QW
     Route: 058
     Dates: start: 20111213

REACTIONS (2)
  - SLEEP APNOEA SYNDROME [None]
  - CONDITION AGGRAVATED [None]
